FAERS Safety Report 5978593-2 (Version None)
Quarter: 2008Q4

REPORT INFORMATION
  Report Type: 
  Country: None (occurrence: None)
  Receive Date: 20081204
  Receipt Date: 20081126
  Transmission Date: 20090506
  Serious: Yes (Hospitalization)
  Sender: FDA-Public Use
  Company Number: B0547910A

PATIENT
  Age: 46 Year
  Sex: Female

DRUGS (8)
  1. LAMICTAL [Suspect]
     Indication: DRUG USE FOR UNKNOWN INDICATION
     Dosage: 100MG PER DAY
     Route: 048
     Dates: start: 20080501, end: 20080910
  2. TEMODAL [Suspect]
     Indication: GLIOBLASTOMA
     Dosage: 125MG PER DAY
     Route: 048
     Dates: start: 20080601, end: 20080905
  3. KEPPRA [Suspect]
     Dosage: 500MG TWICE PER DAY
     Route: 048
     Dates: start: 20080501, end: 20080915
  4. MEDROL [Concomitant]
     Route: 065
     Dates: start: 20080601
  5. LEXOMIL [Concomitant]
     Route: 065
     Dates: start: 20080601
  6. NEXIUM [Concomitant]
     Route: 065
     Dates: start: 20080601
  7. LAMALINE [Concomitant]
     Route: 065
     Dates: start: 20080601
  8. RADIOTHERAPY [Concomitant]
     Indication: GLIOBLASTOMA
     Dates: start: 20080601

REACTIONS (9)
  - ANAEMIA [None]
  - DEEP VEIN THROMBOSIS [None]
  - DIABETIC KETOACIDOSIS [None]
  - LEUKOPENIA [None]
  - LUNG DISORDER [None]
  - MULTI-ORGAN FAILURE [None]
  - NEUTROPENIA [None]
  - OEDEMA PERIPHERAL [None]
  - THROMBOCYTOPENIA [None]
